FAERS Safety Report 10586701 (Version 1)
Quarter: 2014Q4

REPORT INFORMATION
  Report Type: Spontaneous
  Country: None (occurrence: None)
  Receive Date: 20141114
  Receipt Date: 20141114
  Transmission Date: 20150529
  Serious: Yes (Life-Threatening, Hospitalization)
  Sender: FDA-Public Use
  Company Number: None

PATIENT
  Age: 50 Day
  Sex: Male

DRUGS (1)
  1. ZOPICLONE [Suspect]
     Active Substance: ZOPICLONE
     Dosage: 1 PILL  AT BEDTIME TAKEN BY MOUTH
     Route: 048

REACTIONS (1)
  - Amnesia [None]
